FAERS Safety Report 5001606-1 (Version None)
Quarter: 2006Q2

REPORT INFORMATION
  Report Type: 
  Country: None (occurrence: None)
  Receive Date: 20060511
  Receipt Date: 20060511
  Transmission Date: 20061013
  Serious: Yes (Hospitalization)
  Sender: FDA-Public Use
  Company Number: None

PATIENT
  Sex: Male
  Weight: 86.4556 kg

DRUGS (10)
  1. ERLOTINIB   150MG TABS   OSI PHARMACEUTICALS [Suspect]
     Indication: PANCREATIC CARCINOMA
     Dosage: 150MG   Q DAY   PO
     Route: 048
     Dates: start: 20060315, end: 20060405
  2. BEVACIZUMAB   25MG/ML   GENENTECH [Suspect]
     Indication: PANCREATIC CARCINOMA
     Dosage: 15MG/KG   Q 21-DAYS   IV DRIP
     Route: 041
     Dates: start: 20060315, end: 20060405
  3. PROTONIX [Concomitant]
  4. REGLAN [Concomitant]
  5. PANCREASE MT [Concomitant]
  6. CLEOCIN T [Concomitant]
  7. ACETAMINOPHEN [Concomitant]
  8. SALT TABS [Concomitant]
  9. TESSALON [Concomitant]
  10. ARANESP [Concomitant]

REACTIONS (1)
  - PLEURAL EFFUSION [None]
